FAERS Safety Report 8620820-7 (Version None)
Quarter: 2012Q3

REPORT INFORMATION
  Report Type: 
  Country: None (occurrence: None)
  Receive Date: 20120824
  Receipt Date: 20120814
  Transmission Date: 20120928
  Serious: Yes (Hospitalization)
  Sender: FDA-Public Use
  Company Number: US-ROCHE-1101813

PATIENT
  Sex: Male

DRUGS (2)
  1. RIBAVIRIN [Suspect]
     Indication: HEPATITIS C
     Dates: end: 20060101
  2. INTERFERON [Suspect]
     Indication: HEPATITIS C
     Dates: end: 20060101

REACTIONS (2)
  - LIVER TRANSPLANT [None]
  - HEPATITIS [None]
